FAERS Safety Report 7618418-2 (Version None)
Quarter: 2011Q3

REPORT INFORMATION
  Report Type: 
  Country: None (occurrence: None)
  Receive Date: 20110718
  Receipt Date: 20110711
  Transmission Date: 20111222
  Serious: Yes (Other)
  Sender: FDA-Public Use
  Company Number: ES-ROCHE-789552

PATIENT
  Age: 44 Year
  Sex: Female

DRUGS (3)
  1. TOCILIZUMAB [Suspect]
     Dosage: MAINTENANCE DOSE
     Route: 065
  2. METHOTREXATE [Concomitant]
  3. TOCILIZUMAB [Suspect]
     Indication: RHEUMATOID ARTHRITIS
     Dosage: LOADING DOSE
     Route: 065

REACTIONS (1)
  - BRONCHOSPASM [None]
